FAERS Safety Report 7523826-4 (Version None)
Quarter: 2011Q2

REPORT INFORMATION
  Report Type: 
  Country: None (occurrence: None)
  Receive Date: 20110603
  Receipt Date: 20110519
  Transmission Date: 20111010
  Serious: Yes (Death)
  Sender: FDA-Public Use
  Company Number: AT-WATSON-2011-07594

PATIENT
  Age: 72 Year
  Sex: Male

DRUGS (4)
  1. CYCLOPHOSPHAMIDE/CYTRABINE/DOXORUBICIN/VINCRISTINE/CISPLATIN [Suspect]
     Indication: T-CELL LYMPHOMA
  2. PREDNISONE [Suspect]
     Indication: T-CELL LYMPHOMA
  3. DEXAMETHASONE [Suspect]
     Indication: T-CELL LYMPHOMA
  4. ETOPOSIDE [Suspect]
     Indication: T-CELL LYMPHOMA

REACTIONS (2)
  - PERITONITIS [None]
  - DRUG INEFFECTIVE [None]
